FAERS Safety Report 7022260-3 (Version None)
Quarter: 2010Q3

REPORT INFORMATION
  Report Type: 
  Country: None (occurrence: None)
  Receive Date: 20100930
  Receipt Date: 20100920
  Transmission Date: 20110219
  Serious: Yes (Hospitalization, Other)
  Sender: FDA-Public Use
  Company Number: US-JNJFOC-20081205108

PATIENT
  Sex: Female
  Weight: 65.77 kg

DRUGS (13)
  1. REMICADE [Suspect]
     Indication: PSORIASIS
     Route: 042
  2. REMICADE [Suspect]
     Route: 042
  3. PREMARIAN CREAM [Concomitant]
  4. ACTONEL [Concomitant]
     Indication: OSTEOPENIA
  5. ZETIA [Concomitant]
     Indication: BLOOD CHOLESTEROL
  6. NEXIUM [Concomitant]
     Indication: GASTROOESOPHAGEAL REFLUX DISEASE
  7. LEXAPRO [Concomitant]
     Indication: DEPRESSION
  8. CHANTIX [Concomitant]
     Indication: SMOKING CESSATION THERAPY
  9. MULTI-VITAMIN [Concomitant]
     Indication: GENERAL PHYSICAL CONDITION
  10. ASCORBIC ACID [Concomitant]
     Indication: GENERAL PHYSICAL CONDITION
  11. CALCIUM [Concomitant]
     Indication: GENERAL PHYSICAL CONDITION
  12. PREMARIN [Concomitant]
     Indication: HORMONE THERAPY
  13. ADVAIR DISKUS 100/50 [Concomitant]

REACTIONS (15)
  - ARTHRALGIA [None]
  - BLOOD PRESSURE DECREASED [None]
  - DYSPNOEA [None]
  - ERYTHEMA [None]
  - INFUSION RELATED REACTION [None]
  - JOINT STIFFNESS [None]
  - MYALGIA [None]
  - NAUSEA [None]
  - OROPHARYNGEAL PAIN [None]
  - PAIN [None]
  - PYREXIA [None]
  - UPPER RESPIRATORY TRACT INFECTION [None]
  - URTICARIA [None]
  - VOMITING [None]
  - WEIGHT BEARING DIFFICULTY [None]
